FAERS Safety Report 4808681-5 (Version None)
Quarter: 2005Q4

REPORT INFORMATION
  Report Type: 
  Country: None (occurrence: None)
  Receive Date: 20051021
  Receipt Date: 20051021
  Transmission Date: 20060501
  Serious: Yes (Hospitalization)
  Sender: FDA-Public Use
  Company Number: None

PATIENT
  Age: 67 Year
  Sex: Male
  Weight: 84 kg

DRUGS (6)
  1. AZATHIOPRINE [Suspect]
     Indication: WEGENER'S GRANULOMATOSIS
     Dosage: 150MG  QD   PO
     Route: 048
     Dates: start: 20050715, end: 20050806
  2. FUROSEMIDE [Concomitant]
  3. LISINOPRIL [Concomitant]
  4. PREDNISONE [Concomitant]
  5. CALCIUM CARBONATE [Concomitant]
  6. WARFARIN [Concomitant]

REACTIONS (6)
  - ABDOMINAL DISCOMFORT [None]
  - DIARRHOEA [None]
  - DRUG HYPERSENSITIVITY [None]
  - NAUSEA [None]
  - PYREXIA [None]
  - VOMITING [None]
